FAERS Safety Report 7772023-6 (Version None)
Quarter: 2011Q3

REPORT INFORMATION
  Report Type: 
  Country: None (occurrence: None)
  Receive Date: 20110922
  Receipt Date: 20110222
  Transmission Date: 20111222
  Serious: No
  Sender: FDA-Public Use
  Company Number: US-ASTRAZENECA-2011SE10193

PATIENT
  Age: 40 Year
  Sex: Male

DRUGS (1)
  1. SEROQUEL XR [Suspect]
     Dosage: ONE TO TWO TABLETS AT BEDTIME AS REQUIRED
     Route: 048

REACTIONS (4)
  - PAIN [None]
  - GAIT DISTURBANCE [None]
  - DEPRESSED MOOD [None]
  - ACCIDENT AT WORK [None]
